FAERS Safety Report 17261150 (Version 1)
Quarter: 2020Q1

REPORT INFORMATION
  Report Type: Report from Study
  Country: GB (occurrence: GB)
  Receive Date: 20200113
  Receipt Date: 20200113
  Transmission Date: 20200409
  Serious: Yes (Other)
  Sender: FDA-Public Use
  Company Number: GB-SAMSUNG BIOEPIS-SB-2020-00415

PATIENT
  Sex: Female

DRUGS (1)
  1. IMRALDI [Suspect]
     Active Substance: ADALIMUMAB
     Indication: RHEUMATOID ARTHRITIS
     Route: 058
     Dates: start: 20190917

REACTIONS (8)
  - Pain [Unknown]
  - Body temperature increased [Unknown]
  - Injection site pain [Unknown]
  - Injection site mass [Unknown]
  - Bacterial infection [Unknown]
  - Swelling [Unknown]
  - Injection site erythema [Unknown]
  - Immunosuppression [Unknown]
